FAERS Safety Report 16561363 (Version 1)
Quarter: 2019Q3

REPORT INFORMATION
  Report Type: Spontaneous
  Country: DE (occurrence: DE)
  Receive Date: 20190711
  Receipt Date: 20190711
  Transmission Date: 20191004
  Serious: Yes (Hospitalization)
  Sender: FDA-Public Use
  Company Number: DE-TEVA-2019-DE-1075365

PATIENT
  Age: 53 Year
  Sex: Female

DRUGS (4)
  1. CLARITHROMYCIN. [Suspect]
     Active Substance: CLARITHROMYCIN
     Dosage: NK MG, NK
  2. RANEXA [Suspect]
     Active Substance: RANOLAZINE
     Dosage: 375 MG, 1-0-1-0
  3. SALBUTAMOL [Concomitant]
     Active Substance: ALBUTEROL
     Dosage: NK HUB, NK
  4. LEVOTHYROXIN [Concomitant]
     Active Substance: LEVOTHYROXINE
     Dosage: 75 ?G, 1-0-0-0

REACTIONS (7)
  - Medication error [Unknown]
  - Dizziness [Unknown]
  - Tachycardia [Unknown]
  - Contraindicated product administered [Unknown]
  - Electrocardiogram abnormal [Unknown]
  - Electrocardiogram QT prolonged [Unknown]
  - Product prescribing error [Unknown]

NARRATIVE: CASE EVENT DATE: 20161214
